FAERS Safety Report 7623810-6 (Version None)
Quarter: 2011Q3

REPORT INFORMATION
  Report Type: 
  Country: None (occurrence: None)
  Receive Date: 20110720
  Receipt Date: 20110705
  Transmission Date: 20111222
  Serious: Yes (Hospitalization)
  Sender: FDA-Public Use
  Company Number: US-SANOFI-AVENTIS-2011SA044380

PATIENT
  Age: 90 Year
  Sex: Female
  Weight: 84 kg

DRUGS (5)
  1. ATENOLOL [Concomitant]
     Route: 065
  2. WARFARIN SODIUM [Concomitant]
     Route: 065
  3. FUROSEMIDE [Concomitant]
     Route: 065
  4. DRONEDARONE HCL [Suspect]
     Indication: ATRIAL FIBRILLATION
     Route: 048
     Dates: start: 20101122, end: 20110202
  5. QUINAPRIL HCL [Concomitant]
     Route: 065

REACTIONS (3)
  - GASTROINTESTINAL HAEMORRHAGE [None]
  - CARDIAC FAILURE [None]
  - RENAL FAILURE ACUTE [None]
